FAERS Safety Report 12519147 (Version 2)
Quarter: 2016Q3

REPORT INFORMATION
  Report Type: Spontaneous
  Country: US (occurrence: US)
  Receive Date: 20160630
  Receipt Date: 20160705
  Transmission Date: 20161109
  Serious: Yes (Hospitalization)
  Sender: FDA-Public Use
  Company Number: US-BEH-2016070763

PATIENT
  Age: 52 Year
  Sex: Male

DRUGS (1)
  1. HIZENTRA [Suspect]
     Active Substance: HUMAN IMMUNOGLOBULIN G
     Indication: IMMUNODEFICIENCY COMMON VARIABLE
     Dosage: 18 G, UNK
     Route: 058
     Dates: start: 20140213

REACTIONS (2)
  - Hernia repair [Unknown]
  - Hernia [Unknown]

NARRATIVE: CASE EVENT DATE: 20160609
